FAERS Safety Report 4394065-3 (Version None)
Quarter: 2004Q3

REPORT INFORMATION
  Report Type: 
  Country: None (occurrence: None)
  Receive Date: 20040709
  Receipt Date: 20040706
  Transmission Date: 20050211
  Serious: Yes (Hospitalization)
  Sender: FDA-Public Use
  Company Number: US-MERCK-0407USA00501

PATIENT
  Age: 70 Year
  Sex: Female

DRUGS (3)
  1. HYDRODIURIL [Concomitant]
     Route: 048
  2. COZAAR [Concomitant]
     Route: 048
  3. VIOXX [Suspect]
     Indication: RHEUMATOID ARTHRITIS
     Route: 048

REACTIONS (3)
  - CHEST PAIN [None]
  - FAECES DISCOLOURED [None]
  - HYPERTENSION [None]
